FAERS Safety Report 8808939 (Version 1)
Quarter: 2012Q4

REPORT INFORMATION
  Report Type: Spontaneous
  Country: None (occurrence: None)
  Receive Date: 20120920
  Receipt Date: 20120920
  Transmission Date: 20130627
  Serious: No
  Sender: FDA-Public Use
  Company Number: None

PATIENT
  Sex: Female

DRUGS (2)
  1. LUPRON DEPOT [Suspect]
     Dosage: injectable, injection, 11.25 mg, dual-chamber syringe
  2. LUPRON DEPOT [Suspect]
     Dosage: injectable, injection, 11.25 mg, dual-chamber syringe

REACTIONS (1)
  - Drug dispensing error [None]
